FAERS Safety Report 6121508-7 (Version None)
Quarter: 2009Q1

REPORT INFORMATION
  Report Type: 
  Country: None (occurrence: None)
  Receive Date: 20090316
  Receipt Date: 20090316
  Transmission Date: 20090719
  Serious: Yes (Life-Threatening)
  Sender: FDA-Public Use
  Company Number: None

PATIENT
  Age: 61 Year
  Sex: Female

DRUGS (2)
  1. PROAIR HFA [Suspect]
     Dosage: TWICE A DAY INHALED
     Route: 055
     Dates: start: 20081001, end: 20081001
  2. ALBUTEROYL SULFUR IN INHALER SOLUTION [Concomitant]

REACTIONS (3)
  - PRODUCT QUALITY ISSUE [None]
  - RESPIRATORY DISTRESS [None]
  - TREATMENT FAILURE [None]
